FAERS Safety Report 7318347-8 (Version None)
Quarter: 2011Q1

REPORT INFORMATION
  Report Type: 
  Country: None (occurrence: None)
  Receive Date: 20110218
  Receipt Date: 20110218
  Transmission Date: 20110831
  Serious: Yes (Hospitalization)
  Sender: FDA-Public Use
  Company Number: None

PATIENT
  Age: 46 Year
  Sex: Female
  Weight: 122.2 kg

DRUGS (9)
  1. PERCOCET [Concomitant]
  2. ACTOPLUS MET [Concomitant]
  3. OMEPRAZOLE [Concomitant]
  4. BACTRIM DS [Suspect]
     Indication: URINARY TRACT INFECTION
     Dosage: ONE TABLET TWICE DAILY PO RECENT
     Route: 048
  5. VIT D [Concomitant]
  6. M.V.I. [Concomitant]
  7. BENAZEPRIL HYDROCHLORIDE [Concomitant]
  8. FISH OIL [Concomitant]
  9. HYDROCHLOROTHIAZIDE [Concomitant]

REACTIONS (2)
  - PYREXIA [None]
  - DRUG HYPERSENSITIVITY [None]
